FAERS Safety Report 14247993 (Version 2)
Quarter: 2018Q3

REPORT INFORMATION
  Report Type: Spontaneous
  Country: US (occurrence: US)
  Receive Date: 20171204
  Receipt Date: 20180801
  Transmission Date: 20181010
  Serious: No
  Sender: FDA-Public Use
  Company Number: US-PFIZER INC-2017514815

PATIENT
  Age: 82 Year
  Sex: Female

DRUGS (1)
  1. HYDROCORTISONE ACETATE. [Suspect]
     Active Substance: HYDROCORTISONE ACETATE
     Indication: PRURITUS
     Dosage: 1 DF, AS NEEDED
     Route: 061

REACTIONS (1)
  - Drug effect incomplete [Unknown]
